FAERS Safety Report 19479603 (Version 1)
Quarter: 2021Q2

REPORT INFORMATION
  Report Type: Spontaneous
  Country: SA (occurrence: SA)
  Receive Date: 20210630
  Receipt Date: 20210630
  Transmission Date: 20210717
  Serious: Yes (Death)
  Sender: FDA-Public Use
  Company Number: SA-CELGENEUS-SAU-20210607895

PATIENT
  Age: 77 Year
  Sex: Male

DRUGS (1)
  1. AZACITIDINE. [Suspect]
     Active Substance: AZACITIDINE
     Indication: CHRONIC LEUKAEMIA
     Route: 065

REACTIONS (2)
  - Febrile neutropenia [Fatal]
  - Bone marrow failure [Fatal]
